FAERS Safety Report 21371798 (Version 1)
Quarter: 2022Q3

REPORT INFORMATION
  Report Type: Spontaneous
  Country: JP (occurrence: None)
  Receive Date: 20220923
  Receipt Date: 20220923
  Transmission Date: 20221027
  Serious: Yes (Other)
  Sender: FDA-Public Use
  Company Number: 2022A322090

PATIENT
  Age: 46 Year
  Sex: Female

DRUGS (1)
  1. OSIMERTINIB [Suspect]
     Active Substance: OSIMERTINIB
     Indication: Adenosquamous cell lung cancer stage IV
     Route: 048

REACTIONS (2)
  - Alveolar proteinosis [Recovering/Resolving]
  - Off label use [Unknown]
